FAERS Safety Report 9284550 (Version 1)
Quarter: 2013Q2

REPORT INFORMATION
  Report Type: Spontaneous
  Country: IT (occurrence: IT)
  Receive Date: 20130511
  Receipt Date: 20130511
  Transmission Date: 20140414
  Serious: Yes (Other)
  Sender: FDA-Public Use
  Company Number: IT-TEVA-402480ISR

PATIENT
  Age: 81 Year
  Sex: Female

DRUGS (7)
  1. FUROSEMIDE [Suspect]
     Indication: CARDIAC FAILURE
     Dosage: 125 MILLIGRAM DAILY;
     Dates: start: 20130312
  2. RAMIPRIL [Concomitant]
  3. ATENOLOLO [Concomitant]
  4. AMIODARONE [Concomitant]
  5. PANTOPRAZOLO [Concomitant]
  6. WARFARIN SODICO [Concomitant]
  7. AMLODIPINA [Concomitant]

REACTIONS (1)
  - Renal failure acute [Unknown]
